FAERS Safety Report 7384994-0 (Version None)
Quarter: 2011Q1

REPORT INFORMATION
  Report Type: 
  Country: None (occurrence: None)
  Receive Date: 20110330
  Receipt Date: 20110325
  Transmission Date: 20110831
  Serious: Yes (Death, Other)
  Sender: FDA-Public Use
  Company Number: JP-CEPHALON-2011001285

PATIENT
  Sex: Male
  Weight: 60 kg

DRUGS (8)
  1. GRANISETRON HYDROCHLORIDE [Concomitant]
     Dates: start: 20110126, end: 20110301
  2. BENDAMUSTINE HCL [Suspect]
     Indication: MANTLE CELL LYMPHOMA RECURRENT
     Route: 042
     Dates: start: 20110126, end: 20110127
  3. SULFAMETHOXAZOLE AND TRIMETHOPRIM [Concomitant]
  4. BENDAMUSTINE HCL [Suspect]
     Route: 042
     Dates: start: 20110228, end: 20110301
  5. ALLOPURINOL [Concomitant]
     Dates: start: 20110125, end: 20110125
  6. HYDROCORTISONE SODIUM SUCCINATE [Concomitant]
     Dates: start: 20110126, end: 20110301
  7. CEFEPIME HYDROCHLORIDE [Concomitant]
  8. CLOSTRIDIUM BUTYRICUM [Concomitant]
     Dates: end: 20110216

REACTIONS (3)
  - NEUTROPHIL COUNT DECREASED [None]
  - GASTROINTESTINAL HAEMORRHAGE [None]
  - HERPES ZOSTER [None]
